FAERS Safety Report 17975793 (Version 2)
Quarter: 2020Q3

REPORT INFORMATION
  Report Type: Spontaneous
  Country: JP (occurrence: JP)
  Receive Date: 20200702
  Receipt Date: 20200708
  Transmission Date: 20201103
  Serious: Yes (Hospitalization, Other)
  Sender: FDA-Public Use
  Company Number: JP-PFIZER INC-2019435450

PATIENT
  Age: 77 Year
  Sex: Male

DRUGS (8)
  1. RHEUMATREX [Suspect]
     Active Substance: METHOTREXATE SODIUM
     Indication: RHEUMATOID ARTHRITIS
     Dosage: 6 MG, WEEKLY
     Dates: end: 2017
  2. SULFASALAZINE. [Suspect]
     Active Substance: SULFASALAZINE
     Indication: RHEUMATOID ARTHRITIS
     Dosage: 500 MG, DAILY
     Dates: start: 2016, end: 2017
  3. PREDNISOLONE. [Suspect]
     Active Substance: PREDNISOLONE
     Indication: RHEUMATOID ARTHRITIS
     Dosage: UNK, 1?8 MG/DAY
     Route: 048
     Dates: start: 201701, end: 201804
  4. SULFASALAZINE. [Suspect]
     Active Substance: SULFASALAZINE
     Dosage: 1000 MG, DAILY
     Dates: start: 2017
  5. RHEUMATREX [Suspect]
     Active Substance: METHOTREXATE SODIUM
     Dosage: UNK, WEEKLY, (6?8 MG)
     Route: 048
     Dates: start: 2018, end: 2019
  6. PREDNISOLONE. [Suspect]
     Active Substance: PREDNISOLONE
     Indication: POLYMYALGIA RHEUMATICA
     Dosage: 5 MG, DAILY
     Route: 048
     Dates: start: 20161026, end: 201701
  7. RHEUMATREX [Suspect]
     Active Substance: METHOTREXATE SODIUM
     Dosage: 8 MG, WEEKLY
     Route: 048
     Dates: start: 20170112, end: 2018
  8. PREDNISOLONE. [Suspect]
     Active Substance: PREDNISOLONE
     Dosage: UNK, 1?8 MG/DAY
     Route: 048
     Dates: start: 201911

REACTIONS (4)
  - Disease recurrence [Recovering/Resolving]
  - Joint tuberculosis [Recovering/Resolving]
  - Bone tuberculosis [Unknown]
  - Therapeutic response decreased [Unknown]

NARRATIVE: CASE EVENT DATE: 201906
